FAERS Safety Report 19799661 (Version 1)
Quarter: 2021Q3

REPORT INFORMATION
  Report Type: Spontaneous
  Country: US (occurrence: US)
  Receive Date: 20210907
  Receipt Date: 20210907
  Transmission Date: 20211014
  Serious: Yes (Death, Hospitalization)
  Sender: FDA-Public Use
  Company Number: US-MYLANLABS-2021M1059858

PATIENT
  Age: 28 Year
  Sex: Male

DRUGS (2)
  1. ETOPOSIDE. [Suspect]
     Active Substance: ETOPOSIDE
     Indication: NASAL SINUS CANCER
     Dosage: 100 MILLIGRAM/SQ. METER (FOR 3 CONSECUTIVE DAYS)
     Route: 065
  2. CISPLATIN. [Suspect]
     Active Substance: CISPLATIN
     Indication: NASAL SINUS CANCER
     Dosage: 80 MILLIGRAM/SQ. METER (FOR 1 DAY)
     Route: 065

REACTIONS (7)
  - Pneumocephalus [Recovering/Resolving]
  - Metastases to meninges [Unknown]
  - Nasal sinus cancer [Fatal]
  - Rebound effect [Fatal]
  - Respiratory failure [Fatal]
  - Cerebrospinal fluid circulation disorder [Unknown]
  - Quadriparesis [Unknown]
